FAERS Safety Report 6391228-2 (Version None)
Quarter: 2009Q4

REPORT INFORMATION
  Report Type: 
  Country: None (occurrence: None)
  Receive Date: 20091007
  Receipt Date: 20090925
  Transmission Date: 20100525
  Serious: Yes (Other)
  Sender: FDA-Public Use
  Company Number: US-JNJFOC-20091001096

PATIENT
  Age: 3 Year
  Sex: Male
  Weight: 14.52 kg

DRUGS (3)
  1. TYLENOL (CAPLET) [Suspect]
  2. TYLENOL (CAPLET) [Suspect]
     Indication: PAIN IN EXTREMITY
  3. LORATADINE [Concomitant]
     Indication: ALLERGY TO ANIMAL

REACTIONS (3)
  - DECREASED APPETITE [None]
  - PYREXIA [None]
  - TRANSMISSION OF AN INFECTIOUS AGENT VIA A MEDICINAL PRODUCT [None]
